FAERS Safety Report 6260261-3 (Version None)
Quarter: 2009Q3

REPORT INFORMATION
  Report Type: 
  Country: None (occurrence: None)
  Receive Date: 20090708
  Receipt Date: 20090520
  Transmission Date: 20100115
  Serious: Yes (Other)
  Sender: FDA-Public Use
  Company Number: PL-BAXTER-2009BH008951

PATIENT
  Age: 35 Year
  Sex: Female

DRUGS (5)
  1. CYCLOPHOSPHAMIDE [Suspect]
     Indication: BONE MARROW CONDITIONING REGIMEN
     Route: 065
     Dates: start: 20090425
  2. DASATINIB [Suspect]
     Indication: ACUTE LYMPHOCYTIC LEUKAEMIA
     Route: 065
     Dates: start: 20080701
  3. DASATINIB [Suspect]
     Route: 065
     Dates: start: 20081001
  4. DASATINIB [Suspect]
     Route: 065
     Dates: start: 20080801
  5. RADIATION THERAPY [Suspect]
     Indication: BONE MARROW CONDITIONING REGIMEN
     Route: 065
     Dates: start: 20090425

REACTIONS (5)
  - CYTOMEGALOVIRUS INFECTION [None]
  - FEBRILE NEUTROPENIA [None]
  - NAUSEA [None]
  - STOMATITIS [None]
  - VOMITING [None]
